FAERS Safety Report 12113813 (Version 1)
Quarter: 2016Q1

REPORT INFORMATION
  Report Type: Spontaneous
  Country: US (occurrence: US)
  Receive Date: 20160225
  Receipt Date: 20160225
  Transmission Date: 20160526
  Serious: No
  Sender: FDA-Public Use
  Company Number: US-BAYER-2016-037180

PATIENT
  Age: 69 Year
  Sex: Male
  Weight: 88.44 kg

DRUGS (3)
  1. CORTISONE [Concomitant]
     Active Substance: CORTISONE\HYDROCORTISONE
     Dosage: 3 INJECTIONS
     Route: 042
  2. MIRALAX [Suspect]
     Active Substance: POLYETHYLENE GLYCOL 3350
     Indication: CONSTIPATION
     Dosage: 1 DF, QD
     Route: 048
     Dates: start: 20160217, end: 20160223
  3. ENEMA [PHOSPHORIC ACID SODIUM] [Concomitant]

REACTIONS (1)
  - Device ineffective [Recovered/Resolved]

NARRATIVE: CASE EVENT DATE: 20160217
